FAERS Safety Report 17597323 (Version 1)
Quarter: 2020Q1

REPORT INFORMATION
  Report Type: Spontaneous
  Country: ES (occurrence: ES)
  Receive Date: 20200330
  Receipt Date: 20200330
  Transmission Date: 20200409
  Serious: Yes (Death, Hospitalization)
  Sender: FDA-Public Use
  Company Number: ES-TEVA-2020-ES-1212443

PATIENT
  Age: 45 Year
  Sex: Male

DRUGS (4)
  1. METAMIZOL (111A) [Suspect]
     Active Substance: METAMIZOL SODIUM
     Dosage: 575 MG
     Route: 048
     Dates: start: 20200201, end: 20200228
  2. TENOFOVIR (2838A) [Suspect]
     Active Substance: TENOFOVIR
     Indication: HEPATITIS B SURFACE ANTIBODY POSITIVE
     Route: 048
     Dates: start: 20200207, end: 20200228
  3. DEXAMETASONA (722A) [Suspect]
     Active Substance: DEXAMETHASONE
     Route: 048
     Dates: start: 20200212, end: 20200229
  4. BLEOMICINA SULFATO (68SU) [Suspect]
     Active Substance: BLEOMYCIN SULFATE
     Indication: SEMINOMA
     Route: 042
     Dates: start: 20200220, end: 20200222

REACTIONS (2)
  - Pancytopenia [Fatal]
  - Septic shock [Fatal]

NARRATIVE: CASE EVENT DATE: 20200224
